FAERS Safety Report 4371815-3 (Version None)
Quarter: 2004Q2

REPORT INFORMATION
  Report Type: 
  Country: None (occurrence: None)
  Receive Date: 20040602
  Receipt Date: 20040602
  Transmission Date: 20050107
  Serious: Yes (Hospitalization)
  Sender: FDA-Public Use
  Company Number: None

PATIENT
  Sex: Female
  Weight: 56.246 kg

DRUGS (9)
  1. ADRIAMYCIN PFS [Suspect]
     Indication: NON-HODGKIN'S LYMPHOMA
     Dosage: 50MG/M2 EVERY 21 DAYS IV
     Route: 042
     Dates: start: 20041028, end: 20040315
  2. RITUXAN [Concomitant]
  3. CYCLOPHOSPHAMIDE [Concomitant]
  4. PREDNISONE [Concomitant]
  5. GMCSF [Concomitant]
  6. BACTRIM DS [Concomitant]
  7. COUMADIN [Concomitant]
  8. ENALAPRIL [Concomitant]
  9. ARANESP [Concomitant]

REACTIONS (1)
  - CARDIAC FAILURE CONGESTIVE [None]
